FAERS Safety Report 5827370-1 (Version None)
Quarter: 2008Q3

REPORT INFORMATION
  Report Type: 
  Country: None (occurrence: None)
  Receive Date: 20080724
  Receipt Date: 20080716
  Transmission Date: 20090109
  Serious: Yes (Life-Threatening, Hospitalization)
  Sender: FDA-Public Use
  Company Number: TCI2008A03541

PATIENT
  Age: 61 Year
  Sex: Male

DRUGS (10)
  1. ACTOS [Suspect]
     Indication: TYPE 2 DIABETES MELLITUS
     Dosage: 15 MG (15 MG,1 IN 1 D), PER ORAL
     Route: 048
     Dates: start: 20050711, end: 20050725
  2. CANDESARTAN CILEXETIL [Concomitant]
  3. TAKEPRON OD TABLETS 30 (LANSOPRAZOLE) [Concomitant]
  4. ASPIRIN [Concomitant]
  5. WARFARIN (WARFARIN POTASSIUM) [Concomitant]
  6. SELBEX (TEPRENONE) [Concomitant]
  7. KINEDAK (EPALRESTAT) [Concomitant]
  8. NOVORAPID (INSULIN ASPART) [Concomitant]
  9. LANTUS [Concomitant]
  10. HERBAL EXTRACT NOS [Concomitant]

REACTIONS (4)
  - CONTRAST MEDIA ALLERGY [None]
  - HEPATITIS ACUTE [None]
  - PANCREATITIS [None]
  - PNEUMONIA STAPHYLOCOCCAL [None]
